FAERS Safety Report 25502047 (Version 2)
Quarter: 2025Q3

REPORT INFORMATION
  Report Type: Spontaneous
  Country: EU (occurrence: EU)
  Receive Date: 20250702
  Receipt Date: 20250708
  Transmission Date: 20251020
  Serious: Yes (Life-Threatening, Hospitalization, Other)
  Sender: AUROBINDO
  Company Number: EU-ROCHE-10000296870

PATIENT
  Age: 61 Year
  Sex: Male
  Weight: 84.4 kg

DRUGS (6)
  1. DOCETAXEL [Suspect]
     Active Substance: DOCETAXEL
     Indication: Gastric cancer
     Dosage: 50 MILLIGRAM/SQ. METER, 2WEEKS (ON 19-MAY-2025, HE RECEIVED LAST DOSE OF DOCETAXEL (100 MG) PRIOR TO
     Route: 042
     Dates: start: 20241210
  2. OXALIPLATIN [Suspect]
     Active Substance: OXALIPLATIN
     Indication: Gastric cancer
     Dosage: 85 MILLIGRAM/SQ. METER, 2WEEKS  (ON 19-MAY-2025, HE RECEIVED LAST DOSE OF OXALIPLATIN (170 MG) PRIOR
     Route: 042
     Dates: start: 20241210
  3. ATEZOLIZUMAB [Suspect]
     Active Substance: ATEZOLIZUMAB
     Indication: Gastric cancer
     Dosage: 840 MILLIGRAM, EVERY WEEK (ON 19-MAY-2025, HE RECEIVED LAST DOSE OF ATEZOLIZUMAB (840 MG) PRIOR TO R
     Route: 042
     Dates: start: 20241210
  4. FLUOROURACIL [Suspect]
     Active Substance: FLUOROURACIL
     Indication: Gastric cancer
     Dosage: 2600 MILLIGRAM, 2WEEKS (ON 19-MAY-2025, HE RECEIVED LAST DOSE OF 5-FU (5200 MG) PRIOR TO RAE.)
     Route: 042
     Dates: start: 20241210
  5. LEUCOVORIN [Suspect]
     Active Substance: LEUCOVORIN\LEUCOVORIN CALCIUM
     Indication: Gastric cancer
     Dosage: 200 MILLIGRAM/SQ. METER, 2WEEKS (ON 19-MAY-2025, HE RECEIVED LAST DOSE OF LEUCOVORIN (400MG) PRIOR T
     Route: 042
     Dates: start: 20241210
  6. FILGRASTIM [Concomitant]
     Active Substance: FILGRASTIM
     Indication: Product used for unknown indication
     Route: 065
     Dates: start: 20250605, end: 20250606

REACTIONS (3)
  - Sepsis [Not Recovered/Not Resolved]
  - Colitis [Recovered/Resolved with Sequelae]
  - Neutrophil count decreased [Not Recovered/Not Resolved]

NARRATIVE: CASE EVENT DATE: 20250522
